FAERS Safety Report 18287423 (Version 3)
Quarter: 2020Q4

REPORT INFORMATION
  Report Type: Report from Study
  Country: DE (occurrence: DE)
  Receive Date: 20200921
  Receipt Date: 20201016
  Transmission Date: 20210113
  Serious: Yes (Other)
  Sender: FDA-Public Use
  Company Number: DE-REGENERON PHARMACEUTICALS, INC.-2020-76809

PATIENT

DRUGS (8)
  1. EYLEA [Suspect]
     Active Substance: AFLIBERCEPT
     Dosage: 50 ?L, ONCE, RIGHT EYE
     Route: 031
     Dates: start: 20190527, end: 20190527
  2. EYLEA [Suspect]
     Active Substance: AFLIBERCEPT
     Dosage: 50 ?L, ONCE, RIGHT EYE
     Route: 031
     Dates: start: 20191001, end: 20191001
  3. EYLEA [Suspect]
     Active Substance: AFLIBERCEPT
     Dosage: 50 ?L, ONCE, RIGHT EYE
     Route: 031
     Dates: start: 20190624, end: 20190624
  4. EUTHYROX [Concomitant]
     Active Substance: LEVOTHYROXINE SODIUM
     Indication: PRODUCT USED FOR UNKNOWN INDICATION
     Dosage: 75 ?G, QD
     Route: 048
     Dates: start: 2019
  5. EYLEA [Suspect]
     Active Substance: AFLIBERCEPT
     Indication: NEOVASCULAR AGE-RELATED MACULAR DEGENERATION
     Dosage: 50 ?L, ONCE, RIGHT EYE
     Route: 031
     Dates: start: 20190429, end: 20190429
  6. EYLEA [Suspect]
     Active Substance: AFLIBERCEPT
     Dosage: 50 ?L, ONCE, RIGHT EYE
     Route: 031
     Dates: start: 20191029, end: 20191029
  7. HYGROTON [Concomitant]
     Active Substance: CHLORTHALIDONE
     Indication: PRODUCT USED FOR UNKNOWN INDICATION
     Dosage: 25 MG, QD
     Route: 048
     Dates: start: 2019
  8. EYLEA [Suspect]
     Active Substance: AFLIBERCEPT
     Dosage: 50 ?L, ONCE, RIGHT EYE
     Route: 031
     Dates: start: 20190903, end: 20190903

REACTIONS (1)
  - Macular hole [Not Recovered/Not Resolved]

NARRATIVE: CASE EVENT DATE: 20200212
